FAERS Safety Report 25530917 (Version 1)
Quarter: 2025Q3

REPORT INFORMATION
  Report Type: Spontaneous
  Country: US (occurrence: US)
  Receive Date: 20250708
  Receipt Date: 20250708
  Transmission Date: 20251021
  Serious: No
  Sender: Haleon PLC
  Company Number: US-HALEON-2251409

PATIENT

DRUGS (4)
  1. ADVIL [Suspect]
     Active Substance: IBUPROFEN
     Indication: Influenza
  2. ADVIL [Suspect]
     Active Substance: IBUPROFEN
     Indication: Nasopharyngitis
  3. ADVIL [Suspect]
     Active Substance: IBUPROFEN
     Indication: Muscle spasms
  4. ADVIL [Suspect]
     Active Substance: IBUPROFEN
     Indication: Tooth extraction

REACTIONS (2)
  - Product use in unapproved indication [Unknown]
  - Drug effective for unapproved indication [Unknown]
